FAERS Safety Report 7799214 (Version 3)
Quarter: 2020Q3

REPORT INFORMATION
  Report Type: Spontaneous
  Country: BE (occurrence: BE)
  Receive Date: 20110204
  Receipt Date: 20200908
  Transmission Date: 20201103
  Serious: Yes (Hospitalization, Other)
  Sender: FDA-Public Use
  Company Number: PHHY2010BE90581

PATIENT
  Age: 57 Year
  Sex: Male

DRUGS (5)
  1. RIFAMPICIN [Concomitant]
     Active Substance: RIFAMPIN
     Indication: RHODOCOCCUS INFECTION
     Dosage: 12000 MG, QD (600 MG, 2X/DAY)
     Route: 048
     Dates: end: 200704
  2. TACROLIMUS. [Suspect]
     Active Substance: TACROLIMUS
     Indication: IMMUNOSUPPRESSANT DRUG THERAPY
     Dosage: UNK
     Route: 065
  3. MYCOPHENOLATE MOFETIL. [Suspect]
     Active Substance: MYCOPHENOLATE MOFETIL
     Indication: IMMUNOSUPPRESSANT DRUG THERAPY
     Dosage: UNK
     Route: 065
  4. RIFAMPICIN [Concomitant]
     Active Substance: RIFAMPIN
     Dosage: 900 MG, QD (300 MG, 3X/DAY)
     Route: 048
  5. RIFAMPICIN [Concomitant]
     Active Substance: RIFAMPIN
     Dosage: 450 MG, QD (150 MG, 3X/DAY)
     Route: 048

REACTIONS (9)
  - Lung infiltration [Recovered/Resolved]
  - Gastrointestinal toxicity [Recovered/Resolved]
  - Lung consolidation [Recovered/Resolved]
  - Productive cough [Recovered/Resolved]
  - Dyspnoea exertional [Recovered/Resolved]
  - Neuropathy peripheral [Recovered/Resolved]
  - Pyrexia [Recovered/Resolved]
  - Pneumonia necrotising [Recovered/Resolved]
  - Rhodococcus infection [Recovered/Resolved]

NARRATIVE: CASE EVENT DATE: 2006
